FAERS Safety Report 18350285 (Version 2)
Quarter: 2020Q4

REPORT INFORMATION
  Report Type: Report from Study
  Country: US (occurrence: US)
  Receive Date: 20201006
  Receipt Date: 20201110
  Transmission Date: 20210114
  Serious: Yes (Other)
  Sender: FDA-Public Use
  Company Number: US-UCBSA-2020038459

PATIENT
  Sex: Female

DRUGS (1)
  1. CERTOLIZUMAB PEGOL [Suspect]
     Active Substance: CERTOLIZUMAB PEGOL
     Indication: ANKYLOSING SPONDYLITIS
     Dosage: UNK

REACTIONS (3)
  - COVID-19 [Not Recovered/Not Resolved]
  - Quarantine [Unknown]
  - Intentional dose omission [Unknown]

NARRATIVE: CASE EVENT DATE: 2020
